FAERS Safety Report 10525962 (Version 1)
Quarter: 2014Q4

REPORT INFORMATION
  Report Type: Report from Study
  Country: PE (occurrence: PE)
  Receive Date: 20141017
  Receipt Date: 20141017
  Transmission Date: 20150528
  Serious: Yes (Death)
  Sender: FDA-Public Use
  Company Number: PE-ASTRAZENECA-2014SE78202

PATIENT
  Age: 20800 Day
  Sex: Female

DRUGS (1)
  1. SEROQUEL XR [Suspect]
     Active Substance: QUETIAPINE FUMARATE
     Dosage: 450 MG DAILY (1 AND 1/2 TABLETS)
     Route: 048
     Dates: start: 20130307

REACTIONS (1)
  - Death [Fatal]

NARRATIVE: CASE EVENT DATE: 20141013
